FAERS Safety Report 10901799 (Version 1)
Quarter: 2015Q1

REPORT INFORMATION
  Report Type: Spontaneous
  Country: CA (occurrence: CA)
  Receive Date: 20150310
  Receipt Date: 20150310
  Transmission Date: 20150721
  Serious: Yes (Other)
  Sender: FDA-Public Use
  Company Number: CA-TEVA-545950ACC

PATIENT
  Age: 31 Year
  Sex: Female

DRUGS (2)
  1. METOPROLOL [Suspect]
     Active Substance: METOPROLOL
     Indication: BLOOD PRESSURE INCREASED
  2. METOPROLOL [Suspect]
     Active Substance: METOPROLOL
     Indication: HEART RATE INCREASED
     Dosage: 50 MILLIGRAM DAILY;
     Route: 048

REACTIONS (5)
  - Muscle spasms [Unknown]
  - Pain in extremity [Unknown]
  - Neck pain [Unknown]
  - Vascular pain [Unknown]
  - Back pain [Unknown]
